FAERS Safety Report 4357072-2 (Version None)
Quarter: 2004Q2

REPORT INFORMATION
  Report Type: 
  Country: None (occurrence: None)
  Receive Date: 20040512
  Receipt Date: 20040505
  Transmission Date: 20050107
  Serious: Yes (Death)
  Sender: FDA-Public Use
  Company Number: GB-ROCHE-366780

PATIENT
  Age: 75 Year
  Sex: Male
  Weight: 74 kg

DRUGS (6)
  1. CAPECITABINE [Suspect]
     Dosage: 1000MG/M2 DAILY IN TWO DIVIDED DOSES FOR 24 WEEKS.
     Route: 048
     Dates: start: 20021217
  2. EPIRUBICIN [Suspect]
     Dosage: 50MG/M2 ADMINISRED ON DAY ONE OF A THREE WEEKS CYCLE FOR A MAXIMUM OF EIGHT CYCLES.
     Route: 042
     Dates: start: 20021217
  3. CISPLATIN [Suspect]
     Dosage: 130MG/M2 ADMINISTERD WITH HYDRATION ONCE EVERY THREE WEEKS FOR A MAXIMUM OF EIGHT CYCLES.
     Route: 042
     Dates: start: 20021217
  4. BENDROFLUAZIDE [Concomitant]
  5. HYPROMELLOSE [Concomitant]
  6. PYRIDOXINE HCL [Concomitant]
     Indication: PALMAR-PLANTAR ERYTHRODYSAESTHESIA SYNDROME

REACTIONS (8)
  - BLISTER [None]
  - CARDIOMEGALY [None]
  - CORONARY ARTERY ATHEROSCLEROSIS [None]
  - DEEP VEIN THROMBOSIS [None]
  - PULMONARY CONGESTION [None]
  - PULMONARY EMBOLISM [None]
  - PULMONARY OEDEMA [None]
  - VENTRICULAR HYPERTROPHY [None]
